FAERS Safety Report 10703728 (Version 4)
Quarter: 2015Q2

REPORT INFORMATION
  Report Type: Spontaneous
  Country: JP (occurrence: None)
  Receive Date: 20150108
  Receipt Date: 20150401
  Transmission Date: 20150821
  Serious: Yes (Hospitalization, Other)
  Sender: FDA-Public Use
  Company Number: ADR-2015-00024

PATIENT
  Age: 51 Year
  Sex: Male

DRUGS (1)
  1. GABALON INTRATHECAL [Suspect]
     Active Substance: BACLOFEN
     Indication: SPINAL LIGAMENT OSSIFICATION
     Dosage: 150 MCG/DAY
     Dates: start: 20140313

REACTIONS (3)
  - Fracture [None]
  - Compression fracture [None]
  - Lumbar vertebral fracture [None]

NARRATIVE: CASE EVENT DATE: 20141230
